FAERS Safety Report 8979215 (Version 1)
Quarter: 2012Q4

REPORT INFORMATION
  Report Type: 
  Country: FR (occurrence: FR)
  Receive Date: 20121221
  Receipt Date: 20121221
  Transmission Date: 20130627
  Serious: Yes (Other)
  Sender: FDA-Public Use
  Company Number: FR-GLAXOSMITHKLINE-B0853379A

PATIENT
  Age: 14 Year
  Sex: Female

DRUGS (2)
  1. ZOVIRAX [Suspect]
     Indication: MENINGOENCEPHALITIS HERPETIC
     Dosage: 700MG Three times per day
     Route: 042
     Dates: start: 20120911, end: 20120913
  2. RIVOTRIL [Concomitant]
     Route: 042

REACTIONS (1)
  - Renal failure acute [Recovered/Resolved]
